FAERS Safety Report 6620932-3 (Version None)
Quarter: 2010Q1

REPORT INFORMATION
  Report Type: 
  Country: None (occurrence: None)
  Receive Date: 20100309
  Receipt Date: 20100302
  Transmission Date: 20100710
  Serious: Yes (Life-Threatening, Hospitalization)
  Sender: FDA-Public Use
  Company Number: JP-WYE-H13909810

PATIENT
  Age: 61 Year
  Sex: Male

DRUGS (1)
  1. ZOSYN [Suspect]
     Indication: ARTHRITIS BACTERIAL
     Route: 041
     Dates: start: 20100108, end: 20100209

REACTIONS (3)
  - DISSEMINATED INTRAVASCULAR COAGULATION [None]
  - FIBRINOLYSIS ABNORMAL [None]
  - PLATELET COUNT DECREASED [None]
